FAERS Safety Report 5941907-3 (Version None)
Quarter: 2008Q4

REPORT INFORMATION
  Report Type: 
  Country: None (occurrence: None)
  Receive Date: 20081105
  Receipt Date: 20081027
  Transmission Date: 20090506
  Serious: Yes (Hospitalization)
  Sender: FDA-Public Use
  Company Number: FR-BAXTER-2008BH008507

PATIENT
  Age: 64 Year
  Sex: Female

DRUGS (5)
  1. ENDOXAN BAXTER [Suspect]
     Indication: OVARIAN CANCER METASTATIC
     Route: 042
     Dates: start: 20080625, end: 20080723
  2. CARBOPLATIN GENERIC [Suspect]
     Indication: OVARIAN CANCER METASTATIC
     Route: 042
     Dates: start: 20080625, end: 20080723
  3. CARBOPLATIN GENERIC [Suspect]
     Dosage: DOSE UNIT:UNKNOWN
     Route: 065
     Dates: start: 20050901
  4. ZOPHREN [Concomitant]
  5. SOLU-MEDROL [Concomitant]

REACTIONS (8)
  - BRONCHOSPASM [None]
  - CHILLS [None]
  - HYPOTENSION [None]
  - LOSS OF CONSCIOUSNESS [None]
  - MALAISE [None]
  - SALIVARY HYPERSECRETION [None]
  - SHOCK [None]
  - URINARY INCONTINENCE [None]
